FAERS Safety Report 6660740-0 (Version None)
Quarter: 2010Q1

REPORT INFORMATION
  Report Type: 
  Country: None (occurrence: None)
  Receive Date: 20100326
  Receipt Date: 20100317
  Transmission Date: 20100710
  Serious: Yes (Hospitalization, Other)
  Sender: FDA-Public Use
  Company Number: 000511

PATIENT
  Sex: Male
  Weight: 92.5 kg

DRUGS (6)
  1. LACOSAMIDE [Suspect]
     Indication: EPILEPSY
     Dosage: (200 MG BID ORAL)
     Route: 048
     Dates: start: 20030609
  2. LAMICTAL [Concomitant]
  3. OXCARBAZEPINE [Concomitant]
  4. CARDACE /00885601/ [Concomitant]
  5. BETALOC ZOK [Concomitant]
  6. NEURONTIN [Concomitant]

REACTIONS (12)
  - ABDOMINAL PAIN UPPER [None]
  - CARDIAC FIBRILLATION [None]
  - CHEST DISCOMFORT [None]
  - DILATATION VENTRICULAR [None]
  - GASTROINTESTINAL DISORDER [None]
  - HEPATOMEGALY [None]
  - HYPERTENSION [None]
  - LEFT VENTRICULAR HYPERTROPHY [None]
  - MYOCARDIAL ISCHAEMIA [None]
  - NAUSEA [None]
  - POLYP [None]
  - STRESS [None]
